FAERS Safety Report 4330145-6 (Version None)
Quarter: 2004Q2

REPORT INFORMATION
  Report Type: 
  Country: None (occurrence: None)
  Receive Date: 20040402
  Receipt Date: 20040322
  Transmission Date: 20050107
  Serious: Yes (Other)
  Sender: FDA-Public Use
  Company Number: PHFR2004GB01579

PATIENT
  Age: 2 Year
  Sex: Female

DRUGS (1)
  1. TERBINAFINE HCL [Suspect]
     Indication: ONYCHOMYCOSIS
     Dosage: 1-4 TABLETS QD
     Route: 048
     Dates: start: 20040302, end: 20040310

REACTIONS (1)
  - INCONTINENCE [None]
